FAERS Safety Report 13048276 (Version 2)
Quarter: 2016Q4

REPORT INFORMATION
  Report Type: Spontaneous
  Country: JP (occurrence: JP)
  Receive Date: 20161220
  Receipt Date: 20161228
  Transmission Date: 20170207
  Serious: Yes (Other)
  Sender: FDA-Public Use
  Company Number: JP-ASTRAZENECA-2016SF33220

PATIENT
  Age: 74 Year
  Sex: Male

DRUGS (3)
  1. PLETAAL [Concomitant]
     Active Substance: CILOSTAZOL
     Dosage: DOSE UNKNOWN
     Route: 065
  2. BIOFERMIN [Concomitant]
     Active Substance: BACILLUS SUBTILIS\LACTOBACILLUS ACIDOPHILUS\STREPTOCOCCUS FAECAIS
     Dosage: DOSE UNKNOWN
     Route: 065
  3. ZOLADEX LA [Suspect]
     Active Substance: GOSERELIN ACETATE
     Indication: PROSTATE CANCER
     Route: 058
     Dates: start: 20161109

REACTIONS (2)
  - Abdominal distension [Unknown]
  - Subcutaneous haematoma [Unknown]

NARRATIVE: CASE EVENT DATE: 20161109
